FAERS Safety Report 6030453-7 (Version None)
Quarter: 2009Q1

REPORT INFORMATION
  Report Type: 
  Country: None (occurrence: None)
  Receive Date: 20090106
  Receipt Date: 20090106
  Transmission Date: 20090719
  Serious: Yes (Hospitalization)
  Sender: FDA-Public Use
  Company Number: None

PATIENT
  Age: 57 Year
  Sex: Male

DRUGS (2)
  1. AMOXICILLIN + CLAVULANATE POTASSIUM [Suspect]
     Dosage: 875/125 MG BID PO
     Route: 048
     Dates: start: 20080725, end: 20080803
  2. . [Concomitant]

REACTIONS (6)
  - CLOSTRIDIUM DIFFICILE COLITIS [None]
  - DIARRHOEA [None]
  - HAEMATOCHEZIA [None]
  - MUSCLE SPASMS [None]
  - NAUSEA [None]
  - VOMITING [None]
